FAERS Safety Report 20484471 (Version 2)
Quarter: 2022Q1

REPORT INFORMATION
  Report Type: Other
  Country: US (occurrence: None)
  Receive Date: 20220217
  Receipt Date: 20220218
  Transmission Date: 20220423
  Serious: Yes (Death)
  Sender: FDA-Public Use
  Company Number: US-ROCHE-3021981

PATIENT
  Sex: Female

DRUGS (1)
  1. RITUXAN [Suspect]
     Active Substance: RITUXIMAB
     Indication: Meningitis
     Dosage: INFUSE 1000MG INTRAVENOUSLY EVERY 6 MONTH(S)
     Route: 041

REACTIONS (2)
  - Death [Fatal]
  - Off label use [Unknown]
